FAERS Safety Report 4980066-0 (Version None)
Quarter: 2006Q2

REPORT INFORMATION
  Report Type: 
  Country: None (occurrence: None)
  Receive Date: 20060421
  Receipt Date: 20051220
  Transmission Date: 20061013
  Serious: Yes (Other)
  Sender: FDA-Public Use
  Company Number: US-MERCK-0512USA03260

PATIENT
  Age: 50 Year
  Sex: Female
  Weight: 145 kg

DRUGS (5)
  1. VIOXX [Suspect]
     Indication: ARTHRALGIA
     Route: 048
     Dates: start: 20040101, end: 20040101
  2. PEPCID [Concomitant]
     Route: 065
  3. VIRAMUNE [Concomitant]
     Route: 065
  4. ZYRTEC [Concomitant]
     Route: 065
  5. VIREAD [Concomitant]
     Route: 065

REACTIONS (2)
  - PULMONARY EMBOLISM [None]
  - THROMBOSIS [None]
